FAERS Safety Report 8372045-0 (Version None)
Quarter: 2012Q2

REPORT INFORMATION
  Report Type: 
  Country: None (occurrence: None)
  Receive Date: 20120520
  Receipt Date: 20120509
  Transmission Date: 20120825
  Serious: Yes (Other)
  Sender: FDA-Public Use
  Company Number: PHHY2012US041345

PATIENT
  Age: 48 Year
  Sex: Female

DRUGS (5)
  1. VORICONAZOLE [Concomitant]
     Dosage: 400 MG, BID
     Route: 048
  2. NATAMYCIN [Concomitant]
     Route: 061
  3. AMPHOTERICIN B DEOXYCHOLATE [Concomitant]
     Dosage: 5 UG, UNK
  4. VORICONAZOLE [Concomitant]
     Dosage: 200 MG, PER DAY
     Route: 048
  5. PREDNISOLONE [Suspect]
     Indication: PROPHYLAXIS AGAINST GRAFT VERSUS HOST DISEASE

REACTIONS (2)
  - CONDITION AGGRAVATED [None]
  - CORNEAL INFILTRATES [None]
